FAERS Safety Report 8986182 (Version 1)
Quarter: 2012Q4

REPORT INFORMATION
  Report Type: Spontaneous
  Country: US (occurrence: None)
  Receive Date: 20121219
  Receipt Date: 20121219
  Transmission Date: 20130627
  Serious: Yes (Other)
  Sender: FDA-Public Use
  Company Number: None

PATIENT
  Age: 55 Year
  Sex: Female
  Weight: 77.11 kg

DRUGS (1)
  1. CELEBREX [Suspect]
     Indication: ARTHRITIS
     Dosage: 1 Capsule  once a day po
     Route: 048
     Dates: start: 20121126, end: 20121207

REACTIONS (5)
  - Headache [None]
  - Dizziness [None]
  - Nausea [None]
  - Abdominal discomfort [None]
  - Convulsion [None]
